FAERS Safety Report 15883108 (Version 2)
Quarter: 2019Q1

REPORT INFORMATION
  Report Type: Report from Study
  Country: DK (occurrence: DK)
  Receive Date: 20190129
  Receipt Date: 20190206
  Transmission Date: 20190417
  Serious: Yes (Hospitalization)
  Sender: FDA-Public Use
  Company Number: DK-ROCHE-2251700

PATIENT
  Age: 71 Year
  Sex: Male
  Weight: 80.6 kg

DRUGS (13)
  1. BEVACIZUMAB. [Suspect]
     Active Substance: BEVACIZUMAB
     Indication: RENAL CELL CARCINOMA
     Dosage: ON 21/JAN/2019, HE RECEIVED THE MOST RECENT DOSE OF BEVACIZUMAB (1230MG) PRIOR TO EVENT ONSET.
     Route: 042
     Dates: start: 20180917
  2. COZAAR COMP [Concomitant]
     Active Substance: HYDROCHLOROTHIAZIDE\LOSARTAN POTASSIUM
     Dosage: 50+12.5MG
     Route: 065
     Dates: start: 20180906
  3. RANITIDIN [Concomitant]
     Active Substance: RANITIDINE HYDROCHLORIDE
     Route: 065
     Dates: start: 20180917
  4. ATEZOLIZUMAB. [Suspect]
     Active Substance: ATEZOLIZUMAB
     Indication: RENAL CELL CARCINOMA
     Dosage: ON 21/JAN/2019, HE RECEIVED THE MOST RECENT DOSE OF ATEZOLIZUMAB PRIOR TO EVENT ONSET.
     Route: 042
     Dates: start: 20180917
  5. DOMPERIDON [Concomitant]
     Active Substance: DOMPERIDONE
     Route: 065
     Dates: start: 20180917
  6. ONDANSETRON [Concomitant]
     Active Substance: ONDANSETRON
     Route: 065
     Dates: start: 20180917
  7. PETHIDIN [Concomitant]
     Active Substance: MEPERIDINE
     Route: 065
     Dates: start: 20180917
  8. BUDESONID [Concomitant]
     Active Substance: BUDESONIDE
     Dosage: 200UMG/DOSE
     Route: 065
     Dates: start: 20190118
  9. SILDENAFIL. [Concomitant]
     Active Substance: SILDENAFIL
     Route: 065
     Dates: start: 20180917, end: 20190102
  10. PARACETAMOL [Concomitant]
     Active Substance: ACETAMINOPHEN
     Route: 065
     Dates: start: 20180917
  11. RO 6874281 (FAP IL2V MAB) [Suspect]
     Active Substance: RO-6874281
     Indication: RENAL CELL CARCINOMA
     Dosage: ON 21/JAN/2019, HE RECEIVED THE MOST RECENT DOSE OF RO6874281 PRIOR TO EVENT ONSET.
     Route: 042
     Dates: start: 20180917
  12. INDOMETHACIN. [Concomitant]
     Active Substance: INDOMETHACIN
     Route: 065
     Dates: start: 20180917
  13. TAVEGYL [Concomitant]
     Active Substance: CLEMASTINE FUMARATE
     Route: 065
     Dates: start: 20180917

REACTIONS (1)
  - Vomiting [Recovered/Resolved]

NARRATIVE: CASE EVENT DATE: 20190122
